FAERS Safety Report 4631632-3 (Version None)
Quarter: 2005Q2

REPORT INFORMATION
  Report Type: 
  Country: None (occurrence: None)
  Receive Date: 20050407
  Receipt Date: 20050329
  Transmission Date: 20051028
  Serious: Yes (Other)
  Sender: FDA-Public Use
  Company Number: 2005-03-0080

PATIENT
  Age: 68 Year
  Sex: Male
  Weight: 68 kg

DRUGS (10)
  1. PEG-INTRON [Suspect]
     Indication: HEPATITIS C
     Dosage: SEE IMAGE
     Route: 058
     Dates: start: 20050115, end: 20050129
  2. PEG-INTRON [Suspect]
     Indication: HEPATITIS C
     Dosage: SEE IMAGE
     Route: 058
     Dates: start: 20050212, end: 20050219
  3. REBETOL [Suspect]
     Indication: HEPATITIS C
     Dosage: SEE IMAGE
     Route: 048
     Dates: start: 20050115, end: 20050204
  4. REBETOL [Suspect]
     Indication: HEPATITIS C
     Dosage: SEE IMAGE
     Route: 048
     Dates: start: 20050212, end: 20050225
  5. BLOPRESS                (CANDESARTAN CILEXETIL) [Concomitant]
  6. ISOSORBIDE MONONITRATE [Concomitant]
  7. DOGMATYL [Concomitant]
  8. GLYCYRON [Concomitant]
  9. CLARITIN [Concomitant]
  10. CELESTAMINE TAB [Concomitant]

REACTIONS (11)
  - BRAIN OEDEMA [None]
  - CEREBRAL HAEMORRHAGE [None]
  - CEREBRAL INFARCTION [None]
  - DEPRESSION [None]
  - DIZZINESS [None]
  - HEADACHE [None]
  - HEREDITARY CEREBRAL DEGENERATION [None]
  - HYPOAESTHESIA [None]
  - IRRITABILITY [None]
  - PARALYSIS [None]
  - PLATELET COUNT DECREASED [None]
